FAERS Safety Report 20447689 (Version 1)
Quarter: 2022Q1

REPORT INFORMATION
  Report Type: Spontaneous
  Country: US (occurrence: US)
  Receive Date: 20220209
  Receipt Date: 20220209
  Transmission Date: 20220423
  Serious: Yes (Other)
  Sender: FDA-Public Use
  Company Number: US-TOLMAR, INC.-22US032769

PATIENT
  Age: 86 Year
  Sex: Female

DRUGS (17)
  1. LEVETIRACETAM [Suspect]
     Active Substance: LEVETIRACETAM
     Indication: Clonic convulsion
     Dosage: 500 MILLIGRAM, BID
  2. CEFEPIME [Suspect]
     Active Substance: CEFEPIME HYDROCHLORIDE
     Indication: Arteriovenous graft site infection
     Dosage: 2 GRAM, EVERY 48 HOURS
     Route: 042
  3. CEFEPIME [Suspect]
     Active Substance: CEFEPIME HYDROCHLORIDE
     Dosage: 1 GRAM, QD
     Route: 042
  4. CEFEPIME [Suspect]
     Active Substance: CEFEPIME HYDROCHLORIDE
     Dosage: 2 GRAM, Q 3 WEEK
     Route: 042
  5. CEFEPIME [Suspect]
     Active Substance: CEFEPIME HYDROCHLORIDE
     Dosage: UNK
  6. LORAZEPAM [Suspect]
     Active Substance: LORAZEPAM
     Indication: Clonic convulsion
     Dosage: UNK
  7. ACETAMINOPHEN [Concomitant]
     Active Substance: ACETAMINOPHEN
     Indication: Product used for unknown indication
     Dosage: 650 MILLIGRAM, Q 4 HR, PRN
  8. CARVEDILOL [Concomitant]
     Active Substance: CARVEDILOL
     Indication: Product used for unknown indication
     Dosage: 3.125 MILLIGRAM, BID
  9. PANTOPRAZOLE [Concomitant]
     Active Substance: PANTOPRAZOLE
     Indication: Product used for unknown indication
     Dosage: 40 MILLIGRAM, QD
  10. PRAVASTATIN [Concomitant]
     Active Substance: PRAVASTATIN
     Indication: Product used for unknown indication
     Dosage: 10 MILLIGRAM, QD
  11. PRAVASTATIN [Concomitant]
     Active Substance: PRAVASTATIN
     Dosage: 20 MILLIGRAM, QD
  12. POLYETHYLENE GLYCOL 3350 [Concomitant]
     Active Substance: POLYETHYLENE GLYCOL 3350
     Indication: Product used for unknown indication
     Dosage: 17 GRAM, BID
  13. HERBALS\SENNOSIDES [Concomitant]
     Active Substance: HERBALS\SENNOSIDES
     Indication: Product used for unknown indication
     Dosage: 17.2 MILLIGRAM, BID
  14. IPRATROPIUM BROMIDE [Concomitant]
     Active Substance: IPRATROPIUM BROMIDE
     Indication: Product used for unknown indication
     Dosage: UNK, Q 6 HR, PRN
  15. ALBUTEROL SULFATE [Concomitant]
     Active Substance: ALBUTEROL SULFATE
     Indication: Product used for unknown indication
     Dosage: UNK, Q 6 HR, PRN
  16. MEROPENEM [Concomitant]
     Active Substance: MEROPENEM
     Indication: Arteriovenous graft site infection
     Dosage: 500 MILLIGRAM, QD
  17. PIPERACILLIN SODIUM\TAZOBACTAM SODIUM [Concomitant]
     Active Substance: PIPERACILLIN SODIUM\TAZOBACTAM SODIUM
     Indication: Arteriovenous graft site infection

REACTIONS (2)
  - Cerebral small vessel ischaemic disease [Unknown]
  - Cerebrovascular accident [Unknown]
